FAERS Safety Report 23356038 (Version 1)
Quarter: 2024Q1

REPORT INFORMATION
  Report Type: Spontaneous
  Country: US (occurrence: US)
  Receive Date: 20240102
  Receipt Date: 20240102
  Transmission Date: 20240410
  Serious: No
  Sender: FDA-Public Use
  Company Number: US-HORIZON THERAPEUTICS-HZN-2023-001465

PATIENT

DRUGS (2)
  1. UPLIZNA [Suspect]
     Active Substance: INEBILIZUMAB-CDON
     Indication: Neuromyelitis optica spectrum disorder
     Dosage: INITIAL DOSE, 300 MG, FOR 6 MONTHS, TWICE YEARLY
     Route: 042
  2. UPLIZNA [Suspect]
     Active Substance: INEBILIZUMAB-CDON
     Dosage: UNK INFUSION,300 MG, FOR 6 MONTHS, TWICE YEARLY
     Route: 042
     Dates: start: 202210

REACTIONS (1)
  - Noninfective sialoadenitis [Recovering/Resolving]

NARRATIVE: CASE EVENT DATE: 20230218
